FAERS Safety Report 16135036 (Version 2)
Quarter: 2019Q2

REPORT INFORMATION
  Report Type: Spontaneous
  Country: TH (occurrence: TH)
  Receive Date: 20190329
  Receipt Date: 20190412
  Transmission Date: 20190711
  Serious: Yes (Death, Hospitalization)
  Sender: FDA-Public Use
  Company Number: TH-JNJFOC-20190331479

PATIENT

DRUGS (2)
  1. ACETAMINOPHEN. [Suspect]
     Active Substance: ACETAMINOPHEN
     Route: 048
  2. ACETAMINOPHEN. [Suspect]
     Active Substance: ACETAMINOPHEN
     Indication: PRODUCT USED FOR UNKNOWN INDICATION
     Dosage: SELF-POISONING INGESTION (90.6%) WITH THE MEDIAN DOSE OF 10 G (2?50).
     Route: 048

REACTIONS (6)
  - Hepatotoxicity [Unknown]
  - Acute hepatic failure [Fatal]
  - Product administration error [Unknown]
  - Renal injury [Unknown]
  - Overdose [Fatal]
  - Poisoning deliberate [Unknown]
